FAERS Safety Report 7127817-7 (Version None)
Quarter: 2010Q4

REPORT INFORMATION
  Report Type: 
  Country: None (occurrence: None)
  Receive Date: 20101130
  Receipt Date: 20101126
  Transmission Date: 20110411
  Serious: Yes (Other)
  Sender: FDA-Public Use
  Company Number: GB-SP-2010-06494

PATIENT
  Sex: Male

DRUGS (2)
  1. IMMUCYST [Suspect]
     Indication: PRODUCT USED FOR UNKNOWN INDICATION
     Route: 065
     Dates: start: 20101105, end: 20101105
  2. IMMUCYST [Suspect]
     Route: 065
     Dates: start: 20101029, end: 20101029

REACTIONS (1)
  - RASH GENERALISED [None]
